FAERS Safety Report 9327091 (Version 1)
Quarter: 2013Q2

REPORT INFORMATION
  Report Type: Spontaneous
  Country: GB (occurrence: GB)
  Receive Date: 20130604
  Receipt Date: 20130604
  Transmission Date: 20140414
  Serious: Yes (Hospitalization)
  Sender: FDA-Public Use
  Company Number: PHHY2013GB056125

PATIENT
  Age: 46 Year
  Sex: Female

DRUGS (1)
  1. AMOXICILLIN [Suspect]

REACTIONS (6)
  - Drug reaction with eosinophilia and systemic symptoms [Unknown]
  - Hepatic function abnormal [Unknown]
  - Eosinophilia [Unknown]
  - Erythema multiforme [Unknown]
  - Face oedema [Unknown]
  - Rash pustular [Unknown]
